FAERS Safety Report 6511250-2 (Version None)
Quarter: 2009Q4

REPORT INFORMATION
  Report Type: 
  Country: None (occurrence: None)
  Receive Date: 20091222
  Receipt Date: 20090318
  Transmission Date: 20100525
  Serious: No
  Sender: FDA-Public Use
  Company Number: US-ASTRAZENECA-2009UW06995

PATIENT
  Age: 58 Year
  Sex: Female
  Weight: 56.7 kg

DRUGS (6)
  1. CRESTOR [Suspect]
     Route: 048
     Dates: start: 20080101, end: 20090301
  2. ARIMIDEX [Concomitant]
  3. PRILOSEC [Concomitant]
  4. PROTONIX [Concomitant]
  5. BABY ASPIRIN [Concomitant]
  6. BONIVA [Concomitant]

REACTIONS (3)
  - ALOPECIA [None]
  - BONE DENSITY DECREASED [None]
  - MYALGIA [None]
